FAERS Safety Report 9792526 (Version 1)
Quarter: 2014Q1

REPORT INFORMATION
  Report Type: Spontaneous
  Country: US (occurrence: US)
  Receive Date: 20140102
  Receipt Date: 20140102
  Transmission Date: 20141002
  Serious: No
  Sender: FDA-Public Use
  Company Number: US-009507513-1312USA012701

PATIENT
  Age: 49 Year
  Sex: Female

DRUGS (5)
  1. CLARITIN-D [Suspect]
     Indication: NASAL OEDEMA
     Dosage: UNK, UNKNOWN
     Route: 048
  2. CLARITIN-D [Suspect]
     Indication: NASOPHARYNGITIS
  3. CLARITIN-D [Suspect]
     Indication: RESPIRATORY TRACT CONGESTION
  4. CLARITIN-D [Suspect]
     Indication: COUGH
  5. ADVIL COLD AND SINUS [Concomitant]
     Indication: NASOPHARYNGITIS
     Dosage: UNK, UNKNOWN

REACTIONS (1)
  - Drug effect decreased [Unknown]
